FAERS Safety Report 5623921-0 (Version None)
Quarter: 2008Q1

REPORT INFORMATION
  Report Type: 
  Country: None (occurrence: None)
  Receive Date: 20080207
  Receipt Date: 20080124
  Transmission Date: 20080703
  Serious: Yes (Hospitalization)
  Sender: FDA-Public Use
  Company Number: 2008S1000028

PATIENT
  Sex: Male

DRUGS (1)
  1. ACITRETIN [Suspect]
     Indication: DRUG USE FOR UNKNOWN INDICATION
     Dosage: PO
     Route: 048
     Dates: start: 20071101

REACTIONS (3)
  - NEOPLASM MALIGNANT [None]
  - PENIS CARCINOMA [None]
  - RENAL DISORDER [None]
